FAERS Safety Report 24697376 (Version 1)
Quarter: 2024Q4

REPORT INFORMATION
  Report Type: Spontaneous
  Country: US (occurrence: None)
  Receive Date: 20241204
  Receipt Date: 20241204
  Transmission Date: 20250114
  Serious: Yes (Hospitalization, Other)
  Sender: ACS DOBFAR
  Company Number: US-ACS-20240520

PATIENT
  Age: 62 Year
  Sex: Female

DRUGS (3)
  1. CEFEPIME HYDROCHLORIDE [Suspect]
     Active Substance: CEFEPIME HYDROCHLORIDE
     Indication: Sinusitis
     Dosage: DOSE, STRENGTH, FREQUENCY, ROUTE: UNKNOWN ()
  2. DUPIXENT [Concomitant]
     Active Substance: DUPILUMAB
     Indication: Asthma
     Route: 058
     Dates: start: 202405, end: 2024
  3. DUPIXENT [Concomitant]
     Active Substance: DUPILUMAB
     Indication: Asthma
     Dosage: ()
     Dates: start: 20240919

REACTIONS (1)
  - Drug hypersensitivity [Unknown]
